FAERS Safety Report 25359744 (Version 1)
Quarter: 2025Q2

REPORT INFORMATION
  Report Type: Spontaneous
  Country: US (occurrence: US)
  Receive Date: 20250526
  Receipt Date: 20250526
  Transmission Date: 20250717
  Serious: Yes (Hospitalization, Other)
  Sender: PURDUE
  Company Number: US-PURDUE-USA-2025-0317696

PATIENT
  Age: 44 Year
  Sex: Male

DRUGS (7)
  1. BUPRENORPHINE HYDROCHLORIDE AND NALOXONE HYDROCHLORIDE [Suspect]
     Active Substance: BUPRENORPHINE HYDROCHLORIDE\NALOXONE HYDROCHLORIDE
     Indication: Symptomatic treatment
     Route: 065
  2. NALOXONE [Suspect]
     Active Substance: NALOXONE
     Indication: Symptomatic treatment
     Route: 045
  3. FENTANYL [Suspect]
     Active Substance: FENTANYL
     Indication: Product used for unknown indication
     Route: 065
  4. DROPERIDOL [Suspect]
     Active Substance: DROPERIDOL
     Indication: Symptomatic treatment
     Route: 065
  5. DROPERIDOL [Suspect]
     Active Substance: DROPERIDOL
     Route: 065
  6. MIDAZOLAM [Suspect]
     Active Substance: MIDAZOLAM
     Indication: Agitation
     Route: 065
  7. MIDAZOLAM [Suspect]
     Active Substance: MIDAZOLAM
     Route: 065

REACTIONS (9)
  - Respiratory failure [Unknown]
  - Delirium [Recovering/Resolving]
  - Restlessness [Recovering/Resolving]
  - Agitation [Recovering/Resolving]
  - Yawning [Recovering/Resolving]
  - Piloerection [Recovering/Resolving]
  - Somnolence [Not Recovered/Not Resolved]
  - Respiratory depression [Unknown]
  - Drug withdrawal syndrome [Not Recovered/Not Resolved]
